FAERS Safety Report 9731595 (Version 2)
Quarter: 2013Q4

REPORT INFORMATION
  Report Type: Spontaneous
  Country: GB (occurrence: None)
  Receive Date: 20131203
  Receipt Date: 20131213
  Transmission Date: 20140711
  Serious: Yes (Death, Other)
  Sender: FDA-Public Use
  Company Number: AUR-APL-2013-09904

PATIENT
  Age: 37 Year
  Sex: Male

DRUGS (14)
  1. MIRTAZAPINE [Suspect]
     Indication: ANXIETY
     Dosage: 45 MG (45 MG, 1 IN 1 D), UNKNOWN
     Dates: end: 201208
  2. OMEPRAZOLE [Suspect]
     Indication: PRODUCT USED FOR UNKNOWN INDICATION
     Dates: end: 201208
  3. CODEINE [Suspect]
     Indication: BACK PAIN
     Dosage: UNKNOWN
     Dates: end: 201208
  4. BUPRENORPHINE [Suspect]
     Indication: DRUG DEPENDENCE
     Dates: start: 201102, end: 201106
  5. DIAZEPAM [Suspect]
     Indication: PRODUCT USED FOR UNKNOWN INDICATION
     Dosage: UNKNOWN
     Dates: end: 201208
  6. ETHANOL [Suspect]
     Indication: PRODUCT USED FOR UNKNOWN INDICATION
     Dosage: UNKNOWN
     Dates: end: 201208
  7. HEROIN [Suspect]
     Indication: PRODUCT USED FOR UNKNOWN INDICATION
     Dosage: UNKNOWN
     Dates: end: 201208
  8. IRON [Suspect]
     Indication: PRODUCT USED FOR UNKNOWN INDICATION
     Dosage: UNKNOWN
     Dates: end: 2012
  9. METHADONE [Suspect]
     Indication: PRODUCT USED FOR UNKNOWN INDICATION
     Dosage: UNKNOWN
     Dates: end: 201208
  10. NITRAZEPAM [Suspect]
     Indication: PRODUCT USED FOR UNKNOWN INDICATION
     Dosage: UNKNOWN
     Dates: end: 201208
  11. NOSCAPINE [Suspect]
     Indication: PRODUCT USED FOR UNKNOWN INDICATION
     Dates: end: 201208
  12. PAPAVERINE [Suspect]
     Indication: PRODUCT USED FOR UNKNOWN INDICATION
     Dosage: UNKNOWN
     Dates: end: 201208
  13. SUBUTEX [Suspect]
     Indication: DRUG DEPENDENCE
     Dates: start: 2012, end: 20120825
  14. WARFARIN (WARFARIN) [Concomitant]

REACTIONS (11)
  - Abdominal pain [None]
  - Anxiety [None]
  - Depressed mood [None]
  - Overdose [None]
  - Feeling abnormal [None]
  - Swelling face [None]
  - Swelling face [None]
  - Drug ineffective [None]
  - Drug abuse [None]
  - Hypersensitivity [None]
  - Toxicity to various agents [None]
